FAERS Safety Report 9262005 (Version 2)
Quarter: 2013Q3

REPORT INFORMATION
  Report Type: Report from Study
  Country: FR (occurrence: FR)
  Receive Date: 20130429
  Receipt Date: 20130711
  Transmission Date: 20140515
  Serious: Yes (Hospitalization, Other)
  Sender: FDA-Public Use
  Company Number: FR-AMGEN-FRACT2013029665

PATIENT
  Age: 37 Year
  Sex: Female

DRUGS (9)
  1. ETANERCEPT [Suspect]
     Indication: RHEUMATOID ARTHRITIS
     Dosage: 25 MG, 2X/WEEK
     Route: 065
     Dates: start: 200509, end: 200602
  2. ETANERCEPT [Suspect]
     Dosage: 50 MG, QWK
     Route: 065
     Dates: start: 200602, end: 200804
  3. METHOTREXATE [Concomitant]
     Dosage: 17.5 MG, WEEKLY
     Dates: start: 200401, end: 200704
  4. METHOTREXATE [Concomitant]
     Dosage: 15 MG, WEEKLY
     Dates: start: 200704, end: 200706
  5. METHOTREXATE [Concomitant]
     Dosage: 12.5 MG, WEEKLY
     Dates: start: 200706, end: 200804
  6. PREDNISONE [Concomitant]
     Dosage: 5 MG, 1X/DAY
     Dates: start: 200507, end: 200602
  7. PREDNISONE [Concomitant]
     Dosage: 4 MG, 1X/DAY
     Dates: start: 200602, end: 200604
  8. PREDNISONE [Concomitant]
     Dosage: 3 MG, 1X/DAY
     Dates: start: 200604, end: 200606
  9. PREDNISONE [Concomitant]
     Dosage: 2 MG, 1X/DAY
     Dates: start: 200606, end: 200612

REACTIONS (1)
  - Acute leukaemia [Unknown]
